FAERS Safety Report 7979475-7 (Version None)
Quarter: 2011Q4

REPORT INFORMATION
  Report Type: 
  Country: None (occurrence: None)
  Receive Date: 20111214
  Receipt Date: 20111211
  Transmission Date: 20120403
  Serious: Yes (Death, Other)
  Sender: FDA-Public Use
  Company Number: PHHY2011CN105670

PATIENT
  Age: 78 Year
  Sex: Female
  Weight: 62 kg

DRUGS (13)
  1. PRAVASTATIN [Concomitant]
     Dosage: 20 MG, QN
  2. DIGOXIN [Concomitant]
     Dosage: 0.125 MG, QD
  3. XUESAITONG [Concomitant]
     Dosage: 0.2 MG, TID
  4. LOSARTAN POTASSIUM [Concomitant]
  5. NICERGOLINE [Concomitant]
     Dosage: 30 MG, QD
  6. HYDROCHLOROTHIAZIDE [Concomitant]
     Dosage: 25 MG, QD
  7. DICLOFENAC SODIUM [Suspect]
     Dosage: 0.1 BID (2 DAYS)
  8. ZOLEDRONOC ACID [Suspect]
     Indication: BONE PAIN
     Dosage: 5MG/ 100ML
     Route: 042
     Dates: start: 20111123
  9. NICORANDIL [Concomitant]
     Dosage: 5 MG, TID
  10. INSULIN [Concomitant]
  11. CARVEDILOL [Concomitant]
     Dosage: 3.125 MG, QD
  12. FLAVOXATE HYDROCHLORIDE [Concomitant]
     Dosage: 0.2, TID
  13. NOVOLIN 70/30 [Concomitant]
     Dosage: 28 U- 30R 22U IN THE MORNING AND 6U IN THE EVENING

REACTIONS (24)
  - VENOUS PRESSURE JUGULAR INCREASED [None]
  - GALLOP RHYTHM PRESENT [None]
  - INFECTION [None]
  - HEART RATE IRREGULAR [None]
  - ASTHMA [None]
  - CARDIAC FAILURE ACUTE [None]
  - PALPITATIONS [None]
  - LUNG INFECTION [None]
  - COUGH [None]
  - ASPHYXIA [None]
  - DYSPNOEA [None]
  - CONFUSIONAL STATE [None]
  - PALLOR [None]
  - PULSE PRESSURE DECREASED [None]
  - CHEST DISCOMFORT [None]
  - ORTHOPNOEA [None]
  - CYANOSIS [None]
  - OEDEMA PERIPHERAL [None]
  - PYREXIA [None]
  - NAUSEA [None]
  - PERIPHERAL COLDNESS [None]
  - HYPERHIDROSIS [None]
  - RESTLESSNESS [None]
  - PULMONARY OEDEMA [None]
